FAERS Safety Report 10220272 (Version 4)
Quarter: 2014Q4

REPORT INFORMATION
  Report Type: Spontaneous
  Country: IT (occurrence: IT)
  Receive Date: 20140606
  Receipt Date: 20141127
  Transmission Date: 20150528
  Serious: Yes (Death)
  Sender: FDA-Public Use
  Company Number: IT-ROCHE-1411983

PATIENT
  Age: 69 Year
  Sex: Male
  Weight: 60 kg

DRUGS (3)
  1. PEG-INTERFERON LAMBDA [Suspect]
     Active Substance: PEGINTERFERON LAMBDA-1A
     Indication: ANTIVIRAL TREATMENT
     Route: 058
     Dates: start: 20140325, end: 20140503
  2. INCIVO [Suspect]
     Active Substance: TELAPREVIR
     Indication: ANTIVIRAL TREATMENT
     Dosage: 3 TAB + 3 TAB
     Route: 048
     Dates: start: 20140325, end: 20140503
  3. RIBAVIRIN. [Suspect]
     Active Substance: RIBAVIRIN
     Indication: ANTIVIRAL TREATMENT
     Dosage: 3 TAB + 2 TAB
     Route: 048
     Dates: start: 20140325, end: 20140503

REACTIONS (7)
  - Rash [Fatal]
  - Pyrexia [Fatal]
  - Ascites [Fatal]
  - Cholestasis [Fatal]
  - Encephalopathy [Fatal]
  - Hepatic failure [Fatal]
  - Sepsis [Fatal]

NARRATIVE: CASE EVENT DATE: 20140407
